FAERS Safety Report 18226944 (Version 4)
Quarter: 2020Q3

REPORT INFORMATION
  Report Type: Spontaneous
  Country: ES (occurrence: ES)
  Receive Date: 20200903
  Receipt Date: 20200929
  Transmission Date: 20201103
  Serious: Yes (Life-Threatening, Hospitalization, Other)
  Sender: FDA-Public Use
  Company Number: ES-LUPIN PHARMACEUTICALS INC.-2020-05276

PATIENT
  Age: 56 Year
  Sex: Male

DRUGS (32)
  1. OXYCODONE [Suspect]
     Active Substance: OXYCODONE
     Dosage: 40 MILLIGRAM, BID
     Route: 048
     Dates: start: 201704, end: 201708
  2. NALOXEGOL [Interacting]
     Active Substance: NALOXEGOL
     Indication: CONSTIPATION
     Dosage: 25 MILLIGRAM (PER 48 HR)
     Route: 048
     Dates: start: 2017, end: 2017
  3. EVEROLIMUS. [Concomitant]
     Active Substance: EVEROLIMUS
     Indication: PANCREATIC NEUROENDOCRINE TUMOUR
  4. FENTANYL. [Concomitant]
     Active Substance: FENTANYL
     Indication: PAIN
     Dosage: UNK
     Route: 065
     Dates: start: 2017, end: 2017
  5. SUNITINIB [Concomitant]
     Active Substance: SUNITINIB
     Indication: METASTASES TO LIVER
     Dosage: UNK
     Route: 065
  6. STREPTOZOCIN [Concomitant]
     Active Substance: STREPTOZOCIN
     Indication: METASTASES TO LYMPH NODES
  7. EVEROLIMUS. [Concomitant]
     Active Substance: EVEROLIMUS
     Indication: METASTASES TO LIVER
  8. DOXORUBICIN [Concomitant]
     Active Substance: DOXORUBICIN
     Indication: METASTASES TO LYMPH NODES
  9. DOXORUBICIN [Concomitant]
     Active Substance: DOXORUBICIN
     Indication: METASTASES TO LIVER
  10. LUTETIUM (LU 177) [Concomitant]
     Active Substance: LUTETIUM LU-177
     Indication: PANCREATIC NEUROENDOCRINE TUMOUR
     Dosage: UNK
     Route: 065
  11. STREPTOZOCIN [Concomitant]
     Active Substance: STREPTOZOCIN
     Indication: PANCREATIC NEUROENDOCRINE TUMOUR
     Dosage: UNK
     Route: 065
  12. LUTETIUM (LU 177) [Concomitant]
     Active Substance: LUTETIUM LU-177
     Indication: METASTASES TO LIVER
  13. LUTETIUM (LU 177) [Concomitant]
     Active Substance: LUTETIUM LU-177
     Indication: METASTASES TO LYMPH NODES
  14. OXYCODONE [Suspect]
     Active Substance: OXYCODONE
     Indication: PAIN
     Dosage: UNK
     Route: 065
  15. OXYCODONE HCL / NALOXONE HCL [Interacting]
     Active Substance: NALOXONE HYDROCHLORIDE\OXYCODONE HYDROCHLORIDE
     Indication: PAIN
     Dosage: UNK UNK, BID (60/30 MG), (40/20 MG PLUS 20/10 MG), TABLET
     Route: 048
  16. FENTANYL. [Concomitant]
     Active Substance: FENTANYL
     Indication: CANCER PAIN
  17. METOCLOPRAMIDE. [Concomitant]
     Active Substance: METOCLOPRAMIDE
     Indication: PRODUCT USED FOR UNKNOWN INDICATION
     Dosage: UNK
     Route: 065
  18. SUNITINIB [Concomitant]
     Active Substance: SUNITINIB
     Indication: PANCREATIC NEUROENDOCRINE TUMOUR
  19. SUNITINIB [Concomitant]
     Active Substance: SUNITINIB
     Indication: METASTASES TO LYMPH NODES
  20. EVEROLIMUS. [Concomitant]
     Active Substance: EVEROLIMUS
     Indication: METASTASES TO LYMPH NODES
     Dosage: UNK
     Route: 065
  21. LUTETIUM (LU 177) [Concomitant]
     Active Substance: LUTETIUM LU-177
     Indication: METASTASES TO BONE
  22. OXYCODONE HCL / NALOXONE HCL [Interacting]
     Active Substance: NALOXONE HYDROCHLORIDE\OXYCODONE HYDROCHLORIDE
     Dosage: 60 MILLIGRAM, BID (TABLET)
     Route: 048
     Dates: start: 20170817
  23. INSULIN [Concomitant]
     Active Substance: INSULIN NOS
     Indication: PRODUCT USED FOR UNKNOWN INDICATION
     Dosage: UNK
     Route: 065
  24. EVEROLIMUS. [Concomitant]
     Active Substance: EVEROLIMUS
     Indication: METASTASES TO BONE
  25. OMEPRAZOLE. [Concomitant]
     Active Substance: OMEPRAZOLE
     Indication: PRODUCT USED FOR UNKNOWN INDICATION
     Dosage: UNK
     Route: 065
  26. STREPTOZOCIN [Concomitant]
     Active Substance: STREPTOZOCIN
     Indication: METASTASES TO LIVER
  27. ACETAMINOPHEN. [Concomitant]
     Active Substance: ACETAMINOPHEN
     Indication: PRODUCT USED FOR UNKNOWN INDICATION
     Dosage: UNK
     Route: 065
  28. DOXORUBICIN [Concomitant]
     Active Substance: DOXORUBICIN
     Indication: METASTASES TO BONE
     Dosage: UNK
     Route: 065
  29. PARACETAMOL [Concomitant]
     Active Substance: ACETAMINOPHEN
     Indication: CANCER PAIN
     Dosage: UNK
     Route: 065
  30. SUNITINIB [Concomitant]
     Active Substance: SUNITINIB
     Indication: METASTASES TO BONE
  31. STREPTOZOCIN [Concomitant]
     Active Substance: STREPTOZOCIN
     Indication: METASTASES TO BONE
  32. DOXORUBICIN [Concomitant]
     Active Substance: DOXORUBICIN
     Indication: PANCREATIC NEUROENDOCRINE TUMOUR

REACTIONS (12)
  - Pain [Recovered/Resolved]
  - Condition aggravated [Recovered/Resolved]
  - Yawning [Recovered/Resolved]
  - Restless legs syndrome [Recovered/Resolved]
  - Tachycardia [Recovered/Resolved]
  - Drug withdrawal syndrome [Recovered/Resolved]
  - Disorientation [Recovered/Resolved]
  - Hyperhidrosis [Recovered/Resolved]
  - Drug interaction [Unknown]
  - Anxiety [Recovered/Resolved]
  - Agitation [Recovered/Resolved]
  - Constipation [Unknown]

NARRATIVE: CASE EVENT DATE: 2017
